FAERS Safety Report 8954405 (Version 1)
Quarter: 2012Q4

REPORT INFORMATION
  Report Type: 
  Country: US (occurrence: US)
  Receive Date: 20121207
  Receipt Date: 20121207
  Transmission Date: 20130627
  Serious: No
  Sender: FDA-Public Use
  Company Number: US-009507513-1212USA001273

PATIENT

DRUGS (1)
  1. NEXPLANON [Suspect]
     Dosage: 1 rod/eyery three years
     Route: 059

REACTIONS (1)
  - Complication of device insertion [Unknown]
